FAERS Safety Report 6217828-8 (Version None)
Quarter: 2009Q2

REPORT INFORMATION
  Report Type: 
  Country: None (occurrence: None)
  Receive Date: 20090608
  Receipt Date: 20090527
  Transmission Date: 20091009
  Serious: Yes (Hospitalization)
  Sender: FDA-Public Use
  Company Number: ES-AMGEN-UK275589

PATIENT
  Sex: Female

DRUGS (6)
  1. DENOSUMAB - BLINDED [Suspect]
     Indication: METASTASES TO BONE
     Route: 058
     Dates: start: 20070531
  2. DENOSUMAB - COMPARATOR (ZOMETA - BLINDED) [Suspect]
     Indication: METASTASES TO BONE
     Route: 042
     Dates: start: 20070531
  3. PEGFILGRASTIM [Suspect]
     Route: 058
     Dates: start: 20070529, end: 20070911
  4. IBUPROFEN [Concomitant]
     Route: 048
     Dates: start: 20070528
  5. ORFIDAL [Concomitant]
     Route: 048
     Dates: start: 20070528, end: 20070625
  6. DOCETAXEL [Concomitant]
     Route: 065
     Dates: start: 20070528, end: 20070910

REACTIONS (1)
  - PYREXIA [None]
